FAERS Safety Report 4598231-3 (Version None)
Quarter: 2005Q1

REPORT INFORMATION
  Report Type: 
  Country: None (occurrence: None)
  Receive Date: 20050204
  Receipt Date: 20040430
  Transmission Date: 20050727
  Serious: Yes (Death, Hospitalization)
  Sender: FDA-Public Use
  Company Number: PHEH2004US04840

PATIENT
  Age: 43 Year
  Sex: Male

DRUGS (3)
  1. CLOZARIL [Suspect]
     Indication: SCHIZOPHRENIA
     Dosage: 500 MG/DAY, ORAL
     Route: 048
     Dates: end: 20040101
  2. ALBUTEROL [Concomitant]
  3. COMBIVENT [Concomitant]

REACTIONS (2)
  - DEATH [None]
  - PNEUMONIA [None]
